FAERS Safety Report 7746982-1 (Version None)
Quarter: 2011Q3

REPORT INFORMATION
  Report Type: 
  Country: None (occurrence: None)
  Receive Date: 20110913
  Receipt Date: 20110907
  Transmission Date: 20111222
  Serious: Yes (Other)
  Sender: FDA-Public Use
  Company Number: PHHY2011US55702

PATIENT
  Sex: Female

DRUGS (13)
  1. GILENYA [Suspect]
     Indication: MULTIPLE SCLEROSIS
     Dosage: 0.5 MG, QD
     Route: 048
     Dates: start: 20110407, end: 20110907
  2. MELOXICAM [Concomitant]
     Dosage: 7.5 MG, DAILY
     Route: 048
  3. DALIVIT [Concomitant]
     Dosage: UNK UKN, UNK
  4. UNIVASC [Concomitant]
     Dosage: 15 MG, UNK
     Route: 048
  5. PHENOBARBITAL TAB [Concomitant]
     Dosage: UNK UKN, UNK
  6. PAROXETINE HCL [Concomitant]
     Dosage: 40 MG, UNK
     Route: 048
  7. AMLODIPINE [Concomitant]
     Dosage: UNK UKN, UNK
  8. NORVASC [Concomitant]
     Dosage: 2.5 MG, UNK
     Route: 048
  9. RELPAX [Concomitant]
     Dosage: UNK UKN, UNK
  10. ESTRACE [Concomitant]
     Dosage: 2 MG, UNK
     Route: 048
  11. CLONAZEPAM [Concomitant]
     Dosage: 0.5 MG, UNK
     Route: 048
  12. ZEGERID [Concomitant]
     Dosage: 1 DF, UNK
     Route: 048
  13. ATENOLOL [Concomitant]
     Dosage: 25 MG, UNK
     Route: 048

REACTIONS (2)
  - TREMOR [None]
  - VISUAL ACUITY REDUCED [None]
